FAERS Safety Report 9914268 (Version 1)
Quarter: 2014Q1

REPORT INFORMATION
  Report Type: Spontaneous
  Country: US (occurrence: US)
  Receive Date: 20140220
  Receipt Date: 20140220
  Transmission Date: 20141002
  Serious: Yes (Other)
  Sender: FDA-Public Use
  Company Number: US-AMGEN-USASP2014010917

PATIENT
  Age: 74 Year
  Sex: Female
  Weight: 52.15 kg

DRUGS (1)
  1. PROLIA [Suspect]
     Indication: OSTEOPOROSIS
     Dosage: UNK
     Route: 065
     Dates: start: 20131125

REACTIONS (4)
  - Intervertebral disc protrusion [Unknown]
  - Eructation [Unknown]
  - Abdominal discomfort [Unknown]
  - Flatulence [Unknown]
